FAERS Safety Report 5763733-0 (Version None)
Quarter: 2008Q2

REPORT INFORMATION
  Report Type: 
  Country: None (occurrence: None)
  Receive Date: 20080610
  Receipt Date: 20080530
  Transmission Date: 20081010
  Serious: Yes (Other)
  Sender: FDA-Public Use
  Company Number: US-ROCHE-380875

PATIENT
  Sex: Male
  Weight: 97.5 kg

DRUGS (7)
  1. PEGASYS [Suspect]
     Dosage: 1ST SHOT OF THE DRUG.
     Route: 058
     Dates: start: 20040729
  2. PEGASYS [Suspect]
     Dosage: 2ND SHOT OF THE DRUG.
     Route: 058
  3. PEGASYS [Suspect]
     Route: 058
     Dates: start: 20040901
  4. PEGASYS [Suspect]
     Route: 058
  5. COPEGUS [Suspect]
     Route: 048
     Dates: start: 20040729, end: 20040911
  6. CELLCEPT [Concomitant]
     Indication: LIVER TRANSPLANT
     Route: 048
     Dates: start: 20040101
  7. PROGRAF [Concomitant]
     Indication: LIVER TRANSPLANT
     Route: 048
     Dates: start: 20040101

REACTIONS (18)
  - ABDOMINAL PAIN UPPER [None]
  - ARTHRALGIA [None]
  - BACK PAIN [None]
  - CONSTIPATION [None]
  - DYSPNOEA [None]
  - FATIGUE [None]
  - GINGIVAL ERYTHEMA [None]
  - GINGIVAL PAIN [None]
  - GINGIVAL SWELLING [None]
  - HAEMOCHROMATOSIS [None]
  - HAEMOGLOBIN DECREASED [None]
  - INJECTION SITE BRUISING [None]
  - MYALGIA [None]
  - PRURITUS [None]
  - RED BLOOD CELL COUNT DECREASED [None]
  - TEETH BRITTLE [None]
  - TOOTH LOSS [None]
  - WHITE BLOOD CELL COUNT DECREASED [None]
